FAERS Safety Report 24660076 (Version 1)
Quarter: 2024Q4

REPORT INFORMATION
  Report Type: Spontaneous
  Country: JP (occurrence: JP)
  Receive Date: 20241125
  Receipt Date: 20241125
  Transmission Date: 20250115
  Serious: Yes (Other)
  Sender: GLAXOSMITHKLINE
  Company Number: JP-TAKEDA-2024TJP016607

PATIENT

DRUGS (1)
  1. ZEJULA [Suspect]
     Active Substance: NIRAPARIB
     Indication: Ovarian cancer
     Dosage: UNK
     Route: 048

REACTIONS (13)
  - Intestinal obstruction [Unknown]
  - Hyperkalaemia [Unknown]
  - Neutrophil count decreased [Unknown]
  - Platelet count decreased [Unknown]
  - Anaemia [Unknown]
  - Cellulitis [Unknown]
  - Neutrophil count decreased [Unknown]
  - Anaemia [Unknown]
  - Platelet count decreased [Unknown]
  - Hypertension [Unknown]
  - Nausea [Unknown]
  - Malaise [Unknown]
  - Blood creatinine increased [Unknown]
